FAERS Safety Report 22848091 (Version 3)
Quarter: 2023Q4

REPORT INFORMATION
  Report Type: Spontaneous
  Country: US (occurrence: US)
  Receive Date: 20230822
  Receipt Date: 20231222
  Transmission Date: 20240110
  Serious: No
  Sender: FDA-Public Use
  Company Number: US-BIOGEN-2023BI01221532

PATIENT
  Age: 40 Year
  Sex: Female

DRUGS (2)
  1. VUMERITY [Suspect]
     Active Substance: DIROXIMEL FUMARATE
     Indication: Multiple sclerosis
     Route: 050
     Dates: start: 20230725
  2. COVID-19 VACCINE NOS [Suspect]
     Active Substance: COVID-19 VACCINE NOS
     Indication: COVID-19 prophylaxis
     Route: 050

REACTIONS (7)
  - Gastrooesophageal reflux disease [Not Recovered/Not Resolved]
  - Fatigue [Unknown]
  - Gastrointestinal disorder [Unknown]
  - Asthma [Unknown]
  - Tremor [Recovered/Resolved]
  - Immunisation reaction [Recovered/Resolved]
  - Flushing [Recovered/Resolved]

NARRATIVE: CASE EVENT DATE: 20230901
